FAERS Safety Report 4533750-7 (Version None)
Quarter: 2004Q4

REPORT INFORMATION
  Report Type: 
  Country: None (occurrence: None)
  Receive Date: 20041221
  Receipt Date: 20041119
  Transmission Date: 20050328
  Serious: Yes (Life-Threatening)
  Sender: FDA-Public Use
  Company Number: PHBS2004JP15796

PATIENT
  Age: 69 Year
  Sex: Male

DRUGS (14)
  1. HYDREA [Suspect]
     Indication: CHRONIC MYELOID LEUKAEMIA
     Dosage: 500 MG, BID
     Route: 048
     Dates: start: 19930912, end: 19930726
  2. HYDREA [Suspect]
     Dosage: 500 MG, BID
     Route: 048
     Dates: start: 19930825, end: 19930907
  3. HYDREA [Suspect]
     Dosage: 500 MG, QD
     Route: 048
     Dates: start: 19930908, end: 19931003
  4. HYDREA [Suspect]
     Dosage: 500 MG, BID
     Route: 048
     Dates: start: 19931004, end: 19940228
  5. HYDREA [Suspect]
     Dosage: 500 MG, TID
     Route: 048
     Dates: start: 19940301, end: 19980401
  6. NAUZELIN [Concomitant]
     Dosage: 30 MG/D
     Route: 048
     Dates: start: 20020502, end: 20020816
  7. RISUMIC [Concomitant]
     Dosage: 20 MG/D
     Route: 048
     Dates: start: 20020207, end: 20020816
  8. BIOSMIN [Concomitant]
     Dosage: 3 G/D
     Route: 048
     Dates: start: 20020124
  9. CEREKINON [Concomitant]
  10. GLEEVEC [Suspect]
     Indication: CHRONIC MYELOID LEUKAEMIA
     Dosage: 400 MG, QD
     Route: 048
     Dates: start: 20020418, end: 20020809
  11. GLEEVEC [Suspect]
     Dosage: 200 MG, QD
     Route: 048
     Dates: start: 20021008, end: 20030414
  12. GLEEVEC [Suspect]
     Dosage: 300 MG, QD
     Route: 048
     Dates: start: 20030415, end: 20030526
  13. GLEEVEC [Suspect]
     Dosage: 150 MG, BID
     Route: 048
     Dates: start: 20030527, end: 20040803
  14. GLEEVEC [Suspect]
     Dosage: 200 MG, QD
     Route: 048
     Dates: start: 20020124, end: 20020417

REACTIONS (3)
  - SKIN NEOPLASM EXCISION [None]
  - SKIN ULCER [None]
  - SQUAMOUS CELL CARCINOMA OF SKIN [None]
